FAERS Safety Report 16475431 (Version 1)
Quarter: 2019Q2

REPORT INFORMATION
  Report Type: Spontaneous
  Country: US (occurrence: US)
  Receive Date: 20190625
  Receipt Date: 20190625
  Transmission Date: 20190711
  Serious: No
  Sender: FDA-Public Use
  Company Number: US-BAUSCH-BL-2019-017741

PATIENT
  Age: 65 Year
  Sex: Female
  Weight: 59.02 kg

DRUGS (4)
  1. XIFAXAN [Suspect]
     Active Substance: RIFAXIMIN
     Route: 048
     Dates: start: 2019
  2. SYNTHROID [Concomitant]
     Active Substance: LEVOTHYROXINE SODIUM
     Indication: PRODUCT USED FOR UNKNOWN INDICATION
  3. XIFAXAN [Suspect]
     Active Substance: RIFAXIMIN
     Indication: IRRITABLE BOWEL SYNDROME
     Route: 048
     Dates: start: 2017
  4. XIFAXAN [Suspect]
     Active Substance: RIFAXIMIN
     Dosage: IN SEPTEMBER OR OCTOBER OF 2018
     Route: 048
     Dates: start: 2018, end: 2018

REACTIONS (2)
  - Disease recurrence [Not Recovered/Not Resolved]
  - Therapeutic product effect incomplete [Unknown]
